FAERS Safety Report 15321140 (Version 1)
Quarter: 2018Q3

REPORT INFORMATION
  Report Type: Spontaneous
  Country: US (occurrence: US)
  Receive Date: 20180827
  Receipt Date: 20180827
  Transmission Date: 20181010
  Serious: Yes (Other)
  Sender: FDA-Public Use
  Company Number: US-SA-2018SA160221

PATIENT
  Age: 50 Year
  Sex: Female
  Weight: 72.5 kg

DRUGS (2)
  1. TAXOTERE [Suspect]
     Active Substance: DOCETAXEL
     Dosage: 150 MG
     Route: 042
     Dates: start: 20141230, end: 20141230
  2. TAXOTERE [Suspect]
     Active Substance: DOCETAXEL
     Indication: BREAST CANCER FEMALE
     Dosage: 150 MG
     Route: 042
     Dates: start: 20140907, end: 20140907

REACTIONS (6)
  - Psychological trauma [Unknown]
  - Alopecia [Recovering/Resolving]
  - Pain [Unknown]
  - Anxiety [Unknown]
  - Impaired quality of life [Unknown]
  - Emotional distress [Unknown]

NARRATIVE: CASE EVENT DATE: 20141107
